FAERS Safety Report 24201001 (Version 2)
Quarter: 2024Q3

REPORT INFORMATION
  Report Type: Spontaneous
  Country: CN (occurrence: CN)
  Receive Date: 20240812
  Receipt Date: 20240822
  Transmission Date: 20241017
  Serious: Yes (Hospitalization)
  Sender: ROCHE
  Company Number: CN-ROCHE-10000054500

PATIENT
  Age: 58 Year
  Sex: Female

DRUGS (1)
  1. XOFLUZA [Suspect]
     Active Substance: BALOXAVIR MARBOXIL
     Indication: Nasopharyngitis
     Route: 048
     Dates: start: 20230310

REACTIONS (2)
  - Off label use [Unknown]
  - Pneumonia [Recovering/Resolving]
